FAERS Safety Report 25250934 (Version 1)
Quarter: 2025Q2

REPORT INFORMATION
  Report Type: Spontaneous
  Country: US (occurrence: US)
  Receive Date: 20250429
  Receipt Date: 20250429
  Transmission Date: 20250716
  Serious: Yes (Hospitalization)
  Sender: BAYER HEALTHCARE PHARMACEUTICALS INC.
  Company Number: US-BAYER-2025A053990

PATIENT
  Age: 24 Year
  Sex: Male

DRUGS (2)
  1. JIVI [Suspect]
     Active Substance: DAMOCTOCOG ALFA PEGOL
     Indication: Factor VIII deficiency
     Dosage: STRENGTH: 2000; INFUSED 2800 U TWICE WEEKLY
     Route: 042
     Dates: start: 202503
  2. JIVI [Suspect]
     Active Substance: DAMOCTOCOG ALFA PEGOL
     Indication: Prophylaxis
     Dosage: STRENGTH: 500; INFUSED 2800 U TWICE WEEKLY
     Route: 042
     Dates: start: 202503

REACTIONS (2)
  - Limb injury [None]
  - Skin laceration [None]
